FAERS Safety Report 10759126 (Version 1)
Quarter: 2015Q1

REPORT INFORMATION
  Report Type: Spontaneous
  Country: US (occurrence: US)
  Receive Date: 20150203
  Receipt Date: 20150203
  Transmission Date: 20150721
  Serious: Yes (Hospitalization)
  Sender: FDA-Public Use
  Company Number: US-ABBVIE-15P-163-1339504-00

PATIENT
  Age: 62 Year
  Sex: Male

DRUGS (1)
  1. ANDROGEL [Suspect]
     Active Substance: TESTOSTERONE
     Indication: PRODUCT USED FOR UNKNOWN INDICATION
     Route: 061
     Dates: start: 201205

REACTIONS (8)
  - Emotional distress [Unknown]
  - Impaired work ability [Unknown]
  - Deep vein thrombosis [Unknown]
  - Economic problem [Unknown]
  - Injury [Unknown]
  - Anxiety [Unknown]
  - Pulmonary embolism [Unknown]
  - Pain [Unknown]

NARRATIVE: CASE EVENT DATE: 201207
